FAERS Safety Report 17966967 (Version 1)
Quarter: 2020Q3

REPORT INFORMATION
  Report Type: Spontaneous
  Country: SK (occurrence: SK)
  Receive Date: 20200701
  Receipt Date: 20200701
  Transmission Date: 20201103
  Serious: Yes (Other)
  Sender: FDA-Public Use
  Company Number: SK-ROCHE-2633319

PATIENT
  Sex: Male

DRUGS (1)
  1. PEGINTERFERON ALFA?2A. [Suspect]
     Active Substance: PEGINTERFERON ALFA-2A
     Indication: HEPATITIS C
     Dosage: APPROXIMATELY FOR 15 YEARS
     Route: 065

REACTIONS (7)
  - Pyrexia [Unknown]
  - Arthralgia [Unknown]
  - Bone pain [Unknown]
  - Quality of life decreased [Unknown]
  - Drug ineffective [Unknown]
  - Influenza like illness [Unknown]
  - Liver injury [Unknown]
